FAERS Safety Report 20948970 (Version 1)
Quarter: 2022Q2

REPORT INFORMATION
  Report Type: Spontaneous
  Country: MY (occurrence: MY)
  Receive Date: 20220613
  Receipt Date: 20220613
  Transmission Date: 20220721
  Serious: Yes (Other)
  Sender: FDA-Public Use
  Company Number: MY-BAXTER-2022BAX012250

PATIENT
  Age: 60 Year

DRUGS (2)
  1. Baxter Dianeal Low Calcium (2.5 mEq/l) Peritoneal Dialysis Solution wi [Concomitant]
     Indication: End stage renal disease
     Route: 033
  2. EXTRANEAL [Suspect]
     Active Substance: CALCIUM CHLORIDE\ICODEXTRIN\MAGNESIUM CHLORIDE\SODIUM CHLORIDE\SODIUM LACTATE
     Indication: End stage renal disease
     Dosage: UNK
     Route: 033
     Dates: start: 20220512, end: 202206

REACTIONS (2)
  - Ultrafiltration failure [Unknown]
  - Inadequate peritoneal dialysis [Unknown]

NARRATIVE: CASE EVENT DATE: 20220514
